FAERS Safety Report 9479514 (Version 2)
Quarter: 2013Q4

REPORT INFORMATION
  Report Type: Report from Study
  Country: DE (occurrence: DE)
  Receive Date: 20130827
  Receipt Date: 20131206
  Transmission Date: 20140711
  Serious: Yes (Death, Hospitalization, Other)
  Sender: FDA-Public Use
  Company Number: DE-ROCHE-1266637

PATIENT
  Age: 69 Year
  Sex: Female

DRUGS (16)
  1. RITUXIMAB [Suspect]
     Indication: RHEUMATOID ARTHRITIS
     Route: 065
     Dates: start: 20080204, end: 20080804
  2. ADALIMUMAB [Suspect]
     Indication: RHEUMATOID ARTHRITIS
     Route: 065
     Dates: start: 200811
  3. METHOTREXATE [Concomitant]
     Indication: RHEUMATOID ARTHRITIS
     Route: 065
     Dates: start: 199902
  4. CARVEDILOL [Concomitant]
     Indication: HYPERTENSION
     Route: 065
  5. RAMIPRIL [Concomitant]
     Indication: HYPERTENSION
  6. AMLODIPIN [Concomitant]
  7. HCTZ [Concomitant]
     Indication: HYPERTENSION
  8. MARCUMAR [Concomitant]
     Indication: CORONARY ARTERY DISEASE
     Route: 065
  9. PRAVASTATIN [Concomitant]
     Indication: CORONARY ARTERY DISEASE
  10. DECORTIN [Concomitant]
  11. FOLSAN [Concomitant]
  12. OMEPRAZOL [Concomitant]
  13. FERROSANOL DUODENAL [Concomitant]
  14. NITRO SPRAY [Concomitant]
  15. SYMBICORT [Concomitant]
  16. SPIRIVA [Concomitant]

REACTIONS (3)
  - Cerebral infarction [Fatal]
  - Dyspnoea [Unknown]
  - Acute myocardial infarction [Recovered/Resolved]
